FAERS Safety Report 21397718 (Version 1)
Quarter: 2022Q3

REPORT INFORMATION
  Report Type: Report from Study
  Country: CA (occurrence: CA)
  Receive Date: 20220930
  Receipt Date: 20220930
  Transmission Date: 20221027
  Serious: Yes (Other)
  Sender: FDA-Public Use
  Company Number: CA-TAKEDA-2022TUS068011

PATIENT
  Sex: Male

DRUGS (2)
  1. LISDEXAMFETAMINE DIMESYLATE [Suspect]
     Active Substance: LISDEXAMFETAMINE DIMESYLATE
     Indication: Attention deficit hyperactivity disorder
     Dosage: UNK
     Route: 048
  2. LISDEXAMFETAMINE DIMESYLATE [Suspect]
     Active Substance: LISDEXAMFETAMINE DIMESYLATE
     Indication: Lethargy

REACTIONS (7)
  - Neoplasm malignant [Unknown]
  - Bipolar disorder [Recovering/Resolving]
  - Social anxiety disorder [Recovering/Resolving]
  - Memory impairment [Unknown]
  - Off label use [Unknown]
  - Insurance issue [Unknown]
  - Inability to afford medication [Unknown]
